FAERS Safety Report 10814658 (Version 1)
Quarter: 2015Q1

REPORT INFORMATION
  Report Type: Report from Study
  Country: US (occurrence: US)
  Receive Date: 20150218
  Receipt Date: 20150218
  Transmission Date: 20150721
  Serious: No
  Sender: FDA-Public Use
  Company Number: US-ABBVIE-14K-163-1278606-00

PATIENT
  Age: 32 Year
  Sex: Female

DRUGS (4)
  1. ROWASA [Concomitant]
     Active Substance: MESALAMINE
     Indication: COLITIS ULCERATIVE
  2. BENADRYL [Suspect]
     Active Substance: DIPHENHYDRAMINE HYDROCHLORIDE
     Indication: PRURITUS
  3. HUMIRA [Suspect]
     Active Substance: ADALIMUMAB
     Indication: COLITIS ULCERATIVE
     Dates: start: 20140620
  4. ASACOL [Concomitant]
     Active Substance: MESALAMINE
     Indication: COLITIS ULCERATIVE

REACTIONS (8)
  - Injection site induration [Not Recovered/Not Resolved]
  - Injection site induration [Unknown]
  - Injection site pruritus [Not Recovered/Not Resolved]
  - Injection site pruritus [Unknown]
  - Injection site erythema [Not Recovered/Not Resolved]
  - Drug ineffective [Not Recovered/Not Resolved]
  - Injection site induration [Unknown]
  - Injection site erythema [Unknown]

NARRATIVE: CASE EVENT DATE: 2014
